FAERS Safety Report 5819978-4 (Version None)
Quarter: 2008Q3

REPORT INFORMATION
  Report Type: 
  Country: None (occurrence: None)
  Receive Date: 20080721
  Receipt Date: 20080721
  Transmission Date: 20090109
  Serious: Yes (Life-Threatening)
  Sender: FDA-Public Use
  Company Number: 2008AL004136

PATIENT
  Age: 73 Year
  Sex: Male

DRUGS (2)
  1. DIGOXIN [Suspect]
     Indication: CARDIAC DISORDER
     Dosage: 0.25MG, DAILY, PO; SEVERAL YEARS
     Route: 048
  2. DIGOXIN [Suspect]
     Dosage: 0.125MG, DAILY, PO
     Route: 048

REACTIONS (3)
  - CARDIAC PACEMAKER INSERTION [None]
  - DIZZINESS [None]
  - LOSS OF CONSCIOUSNESS [None]
